FAERS Safety Report 5165005-4 (Version None)
Quarter: 2006Q4

REPORT INFORMATION
  Report Type: 
  Country: None (occurrence: None)
  Receive Date: 20061205
  Receipt Date: 20061201
  Transmission Date: 20070319
  Serious: Yes (Death)
  Sender: FDA-Public Use
  Company Number: CA-BOEHRINGER INGELHEIM PHARMACEUTICALS, INC.-2006-CN-00682CN

PATIENT
  Sex: Male

DRUGS (1)
  1. MICARDIS [Suspect]

REACTIONS (1)
  - MYOCARDIAL INFARCTION [None]
